FAERS Safety Report 24183848 (Version 1)
Quarter: 2024Q3

REPORT INFORMATION
  Report Type: Spontaneous
  Country: US (occurrence: US)
  Receive Date: 20240807
  Receipt Date: 20240807
  Transmission Date: 20241017
  Serious: Yes (Other)
  Sender: BAYER
  Company Number: US-BAYER-2024A110472

PATIENT
  Age: 63 Year
  Sex: Female

DRUGS (1)
  1. KOVALTRY [Suspect]
     Active Substance: ANTIHEMOPHILIC FACTOR, HUMAN RECOMBINANT
     Indication: Factor VIII deficiency
     Dosage: 2000 IU, AS NEEDED FOR BREAKTHROUGH BLEEDING PRIOR TO INVASIVE PROCEDURE/ DENTAL WORK
     Route: 042

REACTIONS (2)
  - Haemarthrosis [None]
  - Medical procedure [None]
